FAERS Safety Report 21361892 (Version 1)
Quarter: 2022Q3

REPORT INFORMATION
  Report Type: Spontaneous
  Country: GB (occurrence: GB)
  Receive Date: 20220922
  Receipt Date: 20220922
  Transmission Date: 20221026
  Serious: Yes (Other)
  Sender: FDA-Public Use
  Company Number: GB-ADVANZ PHARMA-202208005421

PATIENT

DRUGS (4)
  1. DONEPEZIL [Suspect]
     Active Substance: DONEPEZIL
     Indication: Product used for unknown indication
     Dosage: UNK
     Route: 065
  2. LEMBOREXANT [Suspect]
     Active Substance: LEMBOREXANT
     Indication: Product used for unknown indication
     Dosage: UNK
     Route: 065
  3. PERAMPANEL [Suspect]
     Active Substance: PERAMPANEL
     Indication: Product used for unknown indication
     Dosage: UNK
     Route: 065
  4. ZONISAMIDE [Suspect]
     Active Substance: ZONISAMIDE
     Indication: Product used for unknown indication
     Dosage: UNK
     Route: 065

REACTIONS (2)
  - Basedow^s disease [Not Recovered/Not Resolved]
  - Occupational exposure to product [Unknown]

NARRATIVE: CASE EVENT DATE: 20211013
